FAERS Safety Report 5303620-5 (Version None)
Quarter: 2007Q2

REPORT INFORMATION
  Report Type: 
  Country: None (occurrence: None)
  Receive Date: 20070420
  Receipt Date: 20070409
  Transmission Date: 20071010
  Serious: Yes (Other)
  Sender: FDA-Public Use
  Company Number: US-PFIZER INC-2007023066

PATIENT
  Sex: Female
  Weight: 111.1 kg

DRUGS (3)
  1. CORTEF [Suspect]
     Indication: ADRENAL INSUFFICIENCY
  2. FLORINEF [Concomitant]
  3. THYROID TAB [Concomitant]

REACTIONS (1)
  - ADRENAL INSUFFICIENCY [None]
